FAERS Safety Report 19706787 (Version 1)
Quarter: 2021Q3

REPORT INFORMATION
  Report Type: Spontaneous
  Country: US (occurrence: US)
  Receive Date: 20210816
  Receipt Date: 20210816
  Transmission Date: 20211014
  Serious: No
  Sender: FDA-Public Use
  Company Number: None

PATIENT
  Age: 21 Year
  Sex: Male
  Weight: 74.25 kg

DRUGS (3)
  1. CIPROFLOXACIN HCL 500MG [Suspect]
     Active Substance: CIPROFLOXACIN HYDROCHLORIDE
     Indication: ESCHERICHIA INFECTION
     Dosage: ?          QUANTITY:1 TABLET(S);?
     Route: 048
     Dates: start: 20210811, end: 20210815
  2. VITAMIN D [Concomitant]
     Active Substance: VITAMIN D NOS
  3. CIPROFLOXACIN HCL 500MG [Suspect]
     Active Substance: CIPROFLOXACIN HYDROCHLORIDE
     Indication: PROSTATITIS
     Dosage: ?          QUANTITY:1 TABLET(S);?
     Route: 048
     Dates: start: 20210811, end: 20210815

REACTIONS (15)
  - Escherichia infection [None]
  - Dizziness [None]
  - Headache [None]
  - Hallucination [None]
  - Cognitive disorder [None]
  - Nightmare [None]
  - Sexually transmitted disease [None]
  - Nausea [None]
  - Bacterial prostatitis [None]
  - Eye pain [None]
  - Paranoia [None]
  - Anxiety [None]
  - Irritability [None]
  - Hyperaesthesia teeth [None]
  - Head discomfort [None]

NARRATIVE: CASE EVENT DATE: 20210811
